FAERS Safety Report 13484765 (Version 3)
Quarter: 2017Q2

REPORT INFORMATION
  Report Type: Spontaneous
  Country: US (occurrence: US)
  Receive Date: 20170426
  Receipt Date: 20170504
  Transmission Date: 20170830
  Serious: Yes (Other)
  Sender: FDA-Public Use
  Company Number: US-PFIZER INC-2017178599

PATIENT

DRUGS (1)
  1. LYRICA [Suspect]
     Active Substance: PREGABALIN
     Dosage: UNK

REACTIONS (8)
  - Insomnia [Unknown]
  - Pain [Unknown]
  - Skin burning sensation [Unknown]
  - Dependence [Unknown]
  - Withdrawal syndrome [Unknown]
  - Nausea [Unknown]
  - Abdominal distension [Unknown]
  - Pruritus [Unknown]
